FAERS Safety Report 8777787 (Version 1)
Quarter: 2012Q4

REPORT INFORMATION
  Report Type: 
  Country: IL (occurrence: IL)
  Receive Date: 20120912
  Receipt Date: 20120912
  Transmission Date: 20130627
  Serious: Yes (Hospitalization, Other)
  Sender: FDA-Public Use
  Company Number: PHHY2012IL078992

PATIENT
  Age: 77 Year
  Sex: Female

DRUGS (2)
  1. ACLASTA [Suspect]
     Indication: OSTEOPOROSIS
     Dosage: 5 mg/ 100 mL
     Route: 042
     Dates: start: 201010
  2. ACLASTA [Suspect]
     Dosage: 5 mg/ 100 mL
     Route: 042
     Dates: start: 201110

REACTIONS (7)
  - Venous thrombosis limb [Recovering/Resolving]
  - Rib fracture [Recovered/Resolved]
  - Influenza like illness [Recovered/Resolved]
  - Chills [Unknown]
  - Pyrexia [Unknown]
  - Nasopharyngitis [Unknown]
  - Thrombosis [None]
